FAERS Safety Report 24856457 (Version 1)
Quarter: 2025Q1

REPORT INFORMATION
  Report Type: Spontaneous
  Country: FR (occurrence: FR)
  Receive Date: 20250117
  Receipt Date: 20250117
  Transmission Date: 20250408
  Serious: Yes (Life-Threatening, Hospitalization, Other)
  Sender: MYLAN
  Company Number: FR-Merck Healthcare KGaA-2024068914

PATIENT
  Sex: Male

DRUGS (1)
  1. METFORMIN [Suspect]
     Active Substance: METFORMIN HYDROCHLORIDE
     Indication: Product used for unknown indication
     Route: 065

REACTIONS (9)
  - Cardio-respiratory arrest [Recovered/Resolved]
  - Dehydration [Unknown]
  - Food poisoning [Unknown]
  - Acute kidney injury [Unknown]
  - Condition aggravated [Unknown]
  - Toxicity to various agents [Unknown]
  - Lactic acidosis [Unknown]
  - Contraindicated product administered [Unknown]
  - Accidental overdose [Unknown]
